FAERS Safety Report 4976873-0 (Version None)
Quarter: 2006Q2

REPORT INFORMATION
  Report Type: 
  Country: None (occurrence: None)
  Receive Date: 20060413
  Receipt Date: 20060403
  Transmission Date: 20061013
  Serious: Yes (Other)
  Sender: FDA-Public Use
  Company Number: 2006046294

PATIENT
  Age: 58 Year
  Sex: Male

DRUGS (7)
  1. LIPITOR [Suspect]
     Indication: BLOOD CHOLESTEROL
  2. FUROSEMIDE [Concomitant]
  3. METOPROLOL [Concomitant]
  4. ALLOPURINOL [Concomitant]
  5. NORVASC [Concomitant]
  6. VOLTAREN [Concomitant]
  7. ALL OTHER THERAPEUTIC PRODUCTS [Concomitant]

REACTIONS (18)
  - CARDIAC DISORDER [None]
  - CARDIOMYOPATHY [None]
  - CHROMATURIA [None]
  - CONDITION AGGRAVATED [None]
  - CONSTIPATION [None]
  - GASTRIC DISORDER [None]
  - HEPATIC FUNCTION ABNORMAL [None]
  - HERNIA REPAIR [None]
  - LIVER DISORDER [None]
  - MUSCLE ATROPHY [None]
  - MUSCLE DISORDER [None]
  - MUSCULAR WEAKNESS [None]
  - MYCOTIC ALLERGY [None]
  - SINUS DISORDER [None]
  - TREATMENT NONCOMPLIANCE [None]
  - WEIGHT DECREASED [None]
  - WEIGHT INCREASED [None]
  - WEIGHT LOSS DIET [None]
